FAERS Safety Report 7374038-9 (Version None)
Quarter: 2011Q1

REPORT INFORMATION
  Report Type: 
  Country: None (occurrence: None)
  Receive Date: 20110325
  Receipt Date: 20110323
  Transmission Date: 20110831
  Serious: Yes (Death)
  Sender: FDA-Public Use
  Company Number: CA-BAYER-2011-025670

PATIENT
  Age: 16 Year
  Sex: Female

DRUGS (1)
  1. YAZ [Suspect]

REACTIONS (1)
  - EMBOLISM VENOUS [None]
